FAERS Safety Report 16893331 (Version 1)
Quarter: 2019Q4

REPORT INFORMATION
  Report Type: Spontaneous
  Country: SE (occurrence: SE)
  Receive Date: 20191008
  Receipt Date: 20191008
  Transmission Date: 20200122
  Serious: Yes (Hospitalization, Other)
  Sender: FDA-Public Use
  Company Number: SE-TEVA-2019-SE-1118173

PATIENT
  Age: 51 Year
  Sex: Female

DRUGS (3)
  1. TOPIMAX [TOPIRAMATE] [Concomitant]
     Active Substance: TOPIRAMATE
  2. ENALAPRIL [Suspect]
     Active Substance: ENALAPRIL
     Dates: start: 2010
  3. AMLODIPIN [Suspect]
     Active Substance: AMLODIPINE BESYLATE
     Dates: start: 2012

REACTIONS (4)
  - Pharyngeal oedema [Recovered/Resolved]
  - Lip swelling [Recovered/Resolved]
  - Angioedema [Recovered/Resolved]
  - Mouth swelling [Unknown]

NARRATIVE: CASE EVENT DATE: 20120818
